FAERS Safety Report 9035456 (Version 1)
Quarter: 2013Q1

REPORT INFORMATION
  Report Type: Report from Study
  Country: US (occurrence: US)
  Receive Date: 20130129
  Receipt Date: 20130129
  Transmission Date: 20140127
  Serious: No
  Sender: FDA-Public Use
  Company Number: US-ABBOTT-12P-163-0899364-00

PATIENT
  Age: 59 Year
  Sex: Female

DRUGS (16)
  1. HUMIRA 40 MG/0.8 ML PEN [Suspect]
     Indication: CROHN^S DISEASE
     Route: 058
     Dates: start: 20111214
  2. PANTOPRAZOLE [Concomitant]
     Indication: GASTROOESOPHAGEAL REFLUX DISEASE
  3. ADVAIR [Concomitant]
     Indication: ASTHMA
     Dosage: 500/50 ONE PUFF TWICE A DAY
  4. FLUTICASONE [Concomitant]
     Indication: ASTHMA
     Dosage: 2 SPRAYS EACH NOSTRIL DAILY
  5. FEXOFENADINE [Concomitant]
     Indication: ASTHMA
  6. SINGULAIR [Concomitant]
     Indication: ASTHMA
  7. RESCUE INHALER ALBUTEROL [Concomitant]
     Indication: ASTHMA
  8. ISOSORBIDE DN [Concomitant]
     Indication: CORONARY ARTERY DISEASE
     Dosage: 1/2 TABLET TWICE A DAY
  9. METOPROLOL [Concomitant]
     Indication: CARDIAC DISORDER
  10. SIMVASTATIN [Concomitant]
     Indication: CARDIAC DISORDER
  11. ASA [Concomitant]
     Indication: CARDIAC DISORDER
  12. MELOXICAM [Concomitant]
     Indication: ARTHRITIS
  13. GABAPENTIN [Concomitant]
     Indication: NEUROPATHY PERIPHERAL
  14. ASACOL [Concomitant]
     Indication: CROHN^S DISEASE
  15. BUDESONIDE [Concomitant]
     Indication: CROHN^S DISEASE
  16. PROCRIT [Concomitant]
     Indication: ANAEMIA
     Dosage: 40000 WEEKLY

REACTIONS (1)
  - Headache [Not Recovered/Not Resolved]
